FAERS Safety Report 12653561 (Version 1)
Quarter: 2016Q3

REPORT INFORMATION
  Report Type: Spontaneous
  Country: US (occurrence: US)
  Receive Date: 20160815
  Receipt Date: 20160815
  Transmission Date: 20161109
  Serious: Yes (Other)
  Sender: FDA-Public Use
  Company Number: US-BEH-2016072599

PATIENT
  Age: 60 Year
  Sex: Female
  Weight: 101.13 kg

DRUGS (24)
  1. PREDNISONE. [Concomitant]
     Active Substance: PREDNISONE
  2. VITAMIN D2 [Concomitant]
     Active Substance: ERGOCALCIFEROL
  3. BISOPROLOL FUMARATE. [Concomitant]
     Active Substance: BISOPROLOL FUMARATE
  4. ACETAMINOPHEN. [Concomitant]
     Active Substance: ACETAMINOPHEN
  5. SINGULAIR [Concomitant]
     Active Substance: MONTELUKAST SODIUM
  6. CALCIUM [Concomitant]
     Active Substance: CALCIUM
  7. PERCOCET                           /00446701/ [Concomitant]
     Active Substance: ACETAMINOPHEN\OXYCODONE HYDROCHLORIDE\OXYCODONE TEREPHTHALATE
  8. HIZENTRA [Suspect]
     Active Substance: HUMAN IMMUNOGLOBULIN G
     Dosage: 100 MG/KG, QW
     Route: 058
     Dates: start: 20160407
  9. CALCITRIOL. [Concomitant]
     Active Substance: CALCITRIOL
  10. SYMBICORT [Concomitant]
     Active Substance: BUDESONIDE\FORMOTEROL FUMARATE DIHYDRATE
  11. ELIQUIS [Concomitant]
     Active Substance: APIXABAN
  12. EFFEXOR [Concomitant]
     Active Substance: VENLAFAXINE HYDROCHLORIDE
  13. LISINOPRIL. [Concomitant]
     Active Substance: LISINOPRIL
  14. DIPHENHYDRAMINE. [Concomitant]
     Active Substance: DIPHENHYDRAMINE
  15. LEVOTHYROXINE. [Concomitant]
     Active Substance: LEVOTHYROXINE
  16. NOVOLOG [Concomitant]
     Active Substance: INSULIN ASPART
  17. BUMETANIDE. [Concomitant]
     Active Substance: BUMETANIDE
  18. EPIPEN [Concomitant]
     Active Substance: EPINEPHRINE
  19. XANAX [Concomitant]
     Active Substance: ALPRAZOLAM
  20. LEVEMIR [Concomitant]
     Active Substance: INSULIN DETEMIR
  21. HIZENTRA [Suspect]
     Active Substance: HUMAN IMMUNOGLOBULIN G
     Indication: IMMUNODEFICIENCY COMMON VARIABLE
     Dosage: 100 MG/KG, UNK
     Route: 058
     Dates: start: 20160328
  22. HIZENTRA [Suspect]
     Active Substance: HUMAN IMMUNOGLOBULIN G
     Dosage: 100 MG/KG, UNK
     Route: 058
     Dates: start: 20160414
  23. LIDOCAINE. [Concomitant]
     Active Substance: LIDOCAINE
  24. VENTOLIN [Concomitant]
     Active Substance: ALBUTEROL SULFATE

REACTIONS (4)
  - Dyspnoea [Unknown]
  - Dyspnoea [Unknown]
  - Wheezing [Unknown]
  - Wheezing [Unknown]

NARRATIVE: CASE EVENT DATE: 20160407
